FAERS Safety Report 25689720 (Version 5)
Quarter: 2025Q4

REPORT INFORMATION
  Report Type: Report from Study
  Country: CO (occurrence: CO)
  Receive Date: 20250818
  Receipt Date: 20251227
  Transmission Date: 20260117
  Serious: Yes (Other)
  Sender: TAKEDA
  Company Number: CO-TAKEDA-2024TUS087938

PATIENT
  Age: 36 Year
  Sex: Male
  Weight: 83 kg

DRUGS (1)
  1. VEDOLIZUMAB [Suspect]
     Active Substance: VEDOLIZUMAB
     Indication: Colitis ulcerative
     Dosage: 300 MILLIGRAM, Q4WEEKS
     Dates: start: 20240814

REACTIONS (9)
  - Rectal haemorrhage [Unknown]
  - Influenza like illness [Recovering/Resolving]
  - Headache [Recovered/Resolved]
  - Cough [Unknown]
  - Frequent bowel movements [Unknown]
  - Flank pain [Unknown]
  - Sacral pain [Unknown]
  - Pharyngeal inflammation [Recovering/Resolving]
  - Influenza [Unknown]

NARRATIVE: CASE EVENT DATE: 20240814
